FAERS Safety Report 14896233 (Version 2)
Quarter: 2019Q1

REPORT INFORMATION
  Report Type: Spontaneous
  Country: PL (occurrence: PL)
  Receive Date: 20180515
  Receipt Date: 20190208
  Transmission Date: 20190417
  Serious: Yes (Other)
  Sender: FDA-Public Use
  Company Number: PL-SA-2018SA109439

PATIENT
  Age: 56 Year
  Weight: 72 kg

DRUGS (1)
  1. FABRAZYME [Suspect]
     Active Substance: AGALSIDASE BETA
     Indication: FABRY^S DISEASE
     Dosage: UNK UNK,QOW
     Route: 041

REACTIONS (5)
  - Mitral valve incompetence [Unknown]
  - Angiokeratoma [Unknown]
  - Aortic valve incompetence [Unknown]
  - Ventricular hypokinesia [Unknown]
  - Tricuspid valve incompetence [Unknown]
